FAERS Safety Report 8089033-4 (Version None)
Quarter: 2012Q1

REPORT INFORMATION
  Report Type: 
  Country: None (occurrence: None)
  Receive Date: 20120128
  Receipt Date: 20110815
  Transmission Date: 20120608
  Serious: No
  Sender: FDA-Public Use
  Company Number: PR-ABBOTT-11P-131-0841369-00

PATIENT
  Sex: Female
  Weight: 55.842 kg

DRUGS (4)
  1. CARDIZEM [Concomitant]
     Indication: HYPERTENSION
     Route: 048
  2. HUMIRA [Suspect]
     Indication: PSORIATIC ARTHROPATHY
     Route: 058
     Dates: start: 20110401
  3. HUMIRA [Suspect]
     Route: 058
     Dates: start: 20110718
  4. LISINOPRIL [Concomitant]
     Indication: HYPERTENSION
     Route: 048

REACTIONS (2)
  - AURICULAR SWELLING [None]
  - HYPOAESTHESIA [None]
